FAERS Safety Report 21865114 (Version 1)
Quarter: 2023Q1

REPORT INFORMATION
  Report Type: Spontaneous
  Country: US (occurrence: US)
  Receive Date: 20230116
  Receipt Date: 20230116
  Transmission Date: 20230418
  Serious: No
  Sender: FDA-Public Use
  Company Number: US-SUN PHARMACEUTICAL INDUSTRIES LTD-2022R1-369520

PATIENT
  Sex: Male

DRUGS (1)
  1. PANTOPRAZOLE [Suspect]
     Active Substance: PANTOPRAZOLE
     Indication: Product used for unknown indication
     Dosage: DELIVERED THROUGH A GASTROINTESTINAL TUBE (INAUDIBLE) DIRECTLY INTO THE J TUBE

REACTIONS (2)
  - Product use complaint [Unknown]
  - Feeding tube user [Unknown]
